FAERS Safety Report 7646617-2 (Version None)
Quarter: 2011Q3

REPORT INFORMATION
  Report Type: 
  Country: None (occurrence: None)
  Receive Date: 20110725
  Receipt Date: 20110712
  Transmission Date: 20111222
  Serious: Yes (Other)
  Sender: FDA-Public Use
  Company Number: 2011JP005718

PATIENT
  Age: 51 Year
  Sex: Female
  Weight: 48 kg

DRUGS (7)
  1. EMEND [Suspect]
     Indication: PROPHYLAXIS OF NAUSEA AND VOMITING
     Dosage: 80 MG, QD, ORAL, 125 MG, QD, ORAL
     Route: 048
     Dates: start: 20110625, end: 20110628
  2. EMEND [Suspect]
     Indication: PROPHYLAXIS OF NAUSEA AND VOMITING
     Dosage: 80 MG, QD, ORAL, 125 MG, QD, ORAL
     Route: 048
     Dates: start: 20110624, end: 20110624
  3. DECADRON [Suspect]
     Indication: PROPHYLAXIS OF NAUSEA AND VOMITING
     Dosage: 8 MG,QD, ORAL
     Route: 048
     Dates: start: 20110626, end: 20110628
  4. ANCER (EXTRACT OF MYCOBACTERIUM TUBERCULOSIS) [Suspect]
     Indication: PROPHYLAXIS
     Dosage: 20 UG, QD, SUBCUTANEOUS
     Route: 058
     Dates: start: 20110625, end: 20110627
  5. CISPLATIN [Suspect]
     Indication: CARCINOMA IN SITU OF SKIN
     Dosage: 150 MG, QD, IV DRIP
     Route: 041
     Dates: start: 20110624, end: 20110624
  6. DEXAMETHASONE SODIUM PHOSPHATE [Suspect]
     Indication: PROPHYLAXIS OF NAUSEA AND VOMITING
     Dosage: 6.6 MG, QD, INTRAVENOUS
     Route: 042
     Dates: start: 20110624, end: 20110626
  7. ALOXI [Suspect]
     Indication: PROPHYLAXIS OF NAUSEA AND VOMITING
     Dosage: 0.75 MG, SINGLE, INTRAVENOUS
     Route: 042
     Dates: start: 20110624, end: 20110624

REACTIONS (1)
  - ANAPHYLACTOID REACTION [None]
